FAERS Safety Report 17975187 (Version 1)
Quarter: 2020Q3

REPORT INFORMATION
  Report Type: Spontaneous
  Country: CN (occurrence: CN)
  Receive Date: 20200702
  Receipt Date: 20200702
  Transmission Date: 20201103
  Serious: Yes (Other)
  Sender: FDA-Public Use
  Company Number: CN-BAXTER-2020BAX013341

PATIENT
  Age: 64 Year
  Sex: Male
  Weight: 54.5 kg

DRUGS (2)
  1. 0.9% SODIUM CHLORIDE INJECTION [Suspect]
     Active Substance: SODIUM CHLORIDE
     Indication: MEDICATION DILUTION
     Route: 041
     Dates: start: 20200613, end: 20200615
  2. SODIUM CREATINE PHOSPHATE [Suspect]
     Active Substance: PHOSPHOCREATINE SODIUM
     Indication: NUTRITIONAL SUPPLEMENTATION
     Route: 041
     Dates: start: 20200613, end: 20200615

REACTIONS (5)
  - Chills [Recovered/Resolved]
  - Chest discomfort [Unknown]
  - Pyrexia [Recovered/Resolved]
  - Dyspnoea [Unknown]
  - Panic reaction [Unknown]

NARRATIVE: CASE EVENT DATE: 20200615
